FAERS Safety Report 6186994-5 (Version None)
Quarter: 2009Q2

REPORT INFORMATION
  Report Type: 
  Country: None (occurrence: None)
  Receive Date: 20090508
  Receipt Date: 20090508
  Transmission Date: 20091009
  Serious: Yes (Life-Threatening, Other)
  Sender: FDA-Public Use
  Company Number: None

PATIENT
  Age: 83 Year
  Sex: Male
  Weight: 72.5755 kg

DRUGS (1)
  1. DIGOXIN [Suspect]
     Indication: ATRIAL FIBRILLATION
     Dosage: 125 MCG ONE A DAY
     Dates: start: 20001213, end: 20090507

REACTIONS (8)
  - CHEST PAIN [None]
  - HEART RATE IRREGULAR [None]
  - INCORRECT DOSE ADMINISTERED [None]
  - NOCTURIA [None]
  - PRODUCT DOSAGE FORM ISSUE [None]
  - ROAD TRAFFIC ACCIDENT [None]
  - SCOTOMA [None]
  - VISION BLURRED [None]
